FAERS Safety Report 24188157 (Version 1)
Quarter: 2024Q3

REPORT INFORMATION
  Report Type: Spontaneous
  Country: ES (occurrence: ES)
  Receive Date: 20240808
  Receipt Date: 20240808
  Transmission Date: 20241016
  Serious: Yes (Hospitalization)
  Sender: B BRAUN
  Company Number: ES-B.Braun Medical Inc.-2160176

PATIENT
  Age: 66 Year
  Sex: Female

DRUGS (1)
  1. ACETAMINOPHEN [Suspect]
     Active Substance: ACETAMINOPHEN
     Dates: start: 20220629

REACTIONS (2)
  - Malaise [Unknown]
  - Hyperhidrosis [Unknown]
